FAERS Safety Report 5963437-5 (Version None)
Quarter: 2008Q4

REPORT INFORMATION
  Report Type: 
  Country: None (occurrence: None)
  Receive Date: 20081121
  Receipt Date: 20081121
  Transmission Date: 20090506
  Serious: No
  Sender: FDA-Public Use
  Company Number: None

PATIENT
  Sex: Male
  Weight: 117.9352 kg

DRUGS (1)
  1. PROPOFOL [Suspect]
     Indication: SEDATIVE THERAPY
     Dosage: 190 IV BOLUSES
     Route: 040
     Dates: start: 20080813, end: 20080813

REACTIONS (5)
  - CHILLS [None]
  - COMPUTERISED TOMOGRAM ABNORMAL [None]
  - MYALGIA [None]
  - POST PROCEDURAL COMPLICATION [None]
  - PYREXIA [None]
